FAERS Safety Report 4440830-3 (Version None)
Quarter: 2004Q3

REPORT INFORMATION
  Report Type: 
  Country: None (occurrence: None)
  Receive Date: 20040903
  Receipt Date: 20040331
  Transmission Date: 20050211
  Serious: Yes (Other)
  Sender: FDA-Public Use
  Company Number: GB-GLAXOSMITHKLINE-B0328670A

PATIENT
  Age: 26 Year
  Sex: Male

DRUGS (4)
  1. LAMICTAL [Suspect]
     Indication: SIMPLE PARTIAL SEIZURES
     Route: 048
  2. VALPROATE SODIUM [Concomitant]
     Indication: EPILEPSY
     Route: 048
  3. RISPERIDONE [Concomitant]
     Dosage: 2MG TWICE PER DAY
     Route: 048
     Dates: start: 20040201
  4. HALOPERIDOL [Concomitant]
     Indication: AGGRESSION
     Dosage: 5MG SEE DOSAGE TEXT
     Route: 048

REACTIONS (4)
  - AGGRESSION [None]
  - IRRITABILITY [None]
  - MOOD SWINGS [None]
  - PARANOIA [None]
